FAERS Safety Report 6607392-3 (Version None)
Quarter: 2010Q1

REPORT INFORMATION
  Report Type: 
  Country: None (occurrence: None)
  Receive Date: 20100301
  Receipt Date: 20100217
  Transmission Date: 20100710
  Serious: No
  Sender: FDA-Public Use
  Company Number: US-BAYER-201010904NA

PATIENT
  Age: 22 Year
  Sex: Female

DRUGS (2)
  1. MIRENA [Suspect]
     Indication: CONTRACEPTION
     Dosage: FREQUENCY :CONTINUOUS
     Route: 015
     Dates: start: 20090710, end: 20091204
  2. MIRENA [Suspect]
     Dosage: FREQUENCY :CONTINUOUS
     Route: 015
     Dates: start: 20091204

REACTIONS (5)
  - DEVICE EXPULSION [None]
  - MEDICAL DEVICE PAIN [None]
  - NAUSEA [None]
  - PREGNANCY WITH CONTRACEPTIVE DEVICE [None]
  - VOMITING [None]
